FAERS Safety Report 4417852-1 (Version None)
Quarter: 2004Q2

REPORT INFORMATION
  Report Type: 
  Country: None (occurrence: None)
  Receive Date: 20040621
  Receipt Date: 20040326
  Transmission Date: 20050107
  Serious: Yes (Other)
  Sender: FDA-Public Use
  Company Number: 2003123855

PATIENT
  Age: 77 Year
  Sex: Male
  Weight: 80 kg

DRUGS (7)
  1. VFEND [Suspect]
     Indication: NEUTROPENIA
     Dosage: 600 MG (BID), ORAL
     Route: 048
     Dates: start: 20030101, end: 20030101
  2. VFEND [Suspect]
     Indication: PROPHYLAXIS
     Dosage: 600 MG (BID), ORAL
     Route: 048
     Dates: start: 20030101, end: 20030101
  3. VERAPAMIL [Suspect]
     Indication: HYPERTENSION
     Dosage: ORAL
     Route: 048
  4. FLUOROURACIL [Concomitant]
  5. CYTARABINE [Concomitant]
  6. ANTINEOPLASTIC AGENTS (ANTINEOPLASTIC AGENTS) [Concomitant]
  7. IDARUBICIN HCL [Concomitant]

REACTIONS (3)
  - DRUG INTERACTION [None]
  - DRUG LEVEL INCREASED [None]
  - HALLUCINATION, AUDITORY [None]
